FAERS Safety Report 6176977-3 (Version None)
Quarter: 2009Q2

REPORT INFORMATION
  Report Type: 
  Country: None (occurrence: None)
  Receive Date: 20090501
  Receipt Date: 20090203
  Transmission Date: 20091009
  Serious: Yes (Other)
  Sender: FDA-Public Use
  Company Number: US-ALEXION-A200900055

PATIENT
  Sex: Male

DRUGS (10)
  1. SOLIRIS [Suspect]
     Indication: PAROXYSMAL NOCTURNAL HAEMOGLOBINURIA
     Dosage: 600 MG, QWK
     Dates: start: 20080717, end: 20080806
  2. SOLIRIS [Suspect]
     Dosage: 900 MG, Q2WK
     Route: 042
     Dates: start: 20080813
  3. BENADRYL [Concomitant]
     Indication: PREMEDICATION
     Dosage: 25 MG, SINGLE
     Route: 042
     Dates: start: 20090115, end: 20090115
  4. DECADRON [Concomitant]
     Indication: PREMEDICATION
     Dosage: 10 MG, SINGLE
     Route: 042
     Dates: start: 20090115, end: 20090115
  5. PEPCID [Concomitant]
     Indication: PREMEDICATION
     Dosage: 20 MG, SINGLE
     Route: 042
     Dates: start: 20090115, end: 20090115
  6. METFORMIN HCL [Concomitant]
     Indication: DIABETES MELLITUS
     Dosage: 500 MG, QD
     Route: 048
  7. LISINOPRIL [Concomitant]
     Dosage: 2.5 MG, QD
     Route: 048
  8. PROTONIX                           /01263201/ [Concomitant]
     Dosage: 40 MG, QD
     Route: 048
  9. MULTIVITAMIN                       /00831701/ [Concomitant]
     Dosage: UNK
     Route: 048
  10. FERROUS SULFATE TAB [Concomitant]
     Dosage: UNK
     Route: 048

REACTIONS (5)
  - ANAPHYLACTIC REACTION [None]
  - DRUG HYPERSENSITIVITY [None]
  - FEELING COLD [None]
  - HYPERSENSITIVITY [None]
  - INJECTION SITE PRURITUS [None]
